FAERS Safety Report 11340146 (Version 1)
Quarter: 2015Q3

REPORT INFORMATION
  Report Type: Spontaneous
  Country: US (occurrence: None)
  Receive Date: 20150803
  Receipt Date: 20150803
  Transmission Date: 20151125
  Serious: Yes (Hospitalization, Other)
  Sender: FDA-Public Use
  Company Number: DEP_03255_2015

PATIENT

DRUGS (1)
  1. GABAPENTIN. [Suspect]
     Active Substance: GABAPENTIN
     Indication: INTENTIONAL OVERDOSE
     Dosage: DF

REACTIONS (2)
  - Toxicity to various agents [None]
  - Intentional overdose [None]
